FAERS Safety Report 18407169 (Version 1)
Quarter: 2020Q4

REPORT INFORMATION
  Report Type: Spontaneous
  Country: US (occurrence: US)
  Receive Date: 20201020
  Receipt Date: 20201020
  Transmission Date: 20210114
  Serious: Yes (Hospitalization, Other)
  Sender: FDA-Public Use
  Company Number: US-PURDUE-USA-2020-0171816

PATIENT
  Sex: Female

DRUGS (2)
  1. HYDROCODONE BITARTRATE (SIMILAR TO NDA 206627) [Suspect]
     Active Substance: HYDROCODONE BITARTRATE
     Indication: PAIN
     Dosage: UNK
     Route: 048
  2. HEROIN [Suspect]
     Active Substance: DIAMORPHINE
     Indication: PRODUCT USED FOR UNKNOWN INDICATION
     Dosage: UNK
     Route: 065

REACTIONS (11)
  - Cardiac disorder [Unknown]
  - Volvulus repair [Unknown]
  - Motor dysfunction [Unknown]
  - Unevaluable event [Unknown]
  - Endocarditis [Unknown]
  - General physical health deterioration [Unknown]
  - Drug dependence [Unknown]
  - Mental disorder [Unknown]
  - Hunger [Unknown]
  - Personality disorder [Unknown]
  - Drug abuse [Unknown]
